FAERS Safety Report 4296260-0 (Version None)
Quarter: 2004Q1

REPORT INFORMATION
  Report Type: 
  Country: None (occurrence: None)
  Receive Date: 20040212
  Receipt Date: 20040202
  Transmission Date: 20041129
  Serious: Yes (Life-Threatening, Hospitalization)
  Sender: FDA-Public Use
  Company Number: HQWYE790902FEB04

PATIENT
  Age: 66 Year
  Sex: Female

DRUGS (1)
  1. INDERAL LA [Suspect]
     Route: 048
     Dates: end: 20020402

REACTIONS (15)
  - ARTERIOSPASM CORONARY [None]
  - ATRIAL FIBRILLATION [None]
  - BLOOD LACTATE DEHYDROGENASE INCREASED [None]
  - BLOOD PRESSURE SYSTOLIC INCREASED [None]
  - BODY TEMPERATURE DECREASED [None]
  - CARDIOMYOPATHY [None]
  - CHEST DISCOMFORT [None]
  - DIZZINESS [None]
  - DRUG WITHDRAWAL SYNDROME [None]
  - DYSPNOEA [None]
  - ELECTROCARDIOGRAM T WAVE INVERSION [None]
  - HEART RATE DECREASED [None]
  - MEDICATION ERROR [None]
  - SINUS ARREST [None]
  - WHITE BLOOD CELL COUNT DECREASED [None]
